FAERS Safety Report 9504504 (Version 1)
Quarter: 2013Q1

REPORT INFORMATION
  Report Type: Spontaneous
  Country: US (occurrence: None)
  Receive Date: 20130225
  Receipt Date: 20130225
  Transmission Date: 20140127
  Serious: Yes (Other)
  Sender: FDA-Public Use
  Company Number: 363641

PATIENT
  Age: 44 Year
  Sex: Female
  Weight: 92.1 kg

DRUGS (5)
  1. VICTOZA [Suspect]
     Indication: TYPE 2 DIABETES MELLITUS
     Route: 058
     Dates: start: 201207
  2. NOVOLOG (INSULIN ASPART) [Concomitant]
  3. LANTUS (INSULIN GLARGINE) [Concomitant]
  4. LISINOPRIL (LISINOPRIL) [Concomitant]
  5. ZOLOFT (SERTRALINE HYDROCHLORIDE) [Concomitant]

REACTIONS (3)
  - Renal failure chronic [None]
  - Contusion [None]
  - Skin lesion [None]
